FAERS Safety Report 4824608-4 (Version None)
Quarter: 2005Q4

REPORT INFORMATION
  Report Type: 
  Country: None (occurrence: None)
  Receive Date: 20051108
  Receipt Date: 20051020
  Transmission Date: 20060501
  Serious: Yes (Other)
  Sender: FDA-Public Use
  Company Number: FR_051007370

PATIENT
  Sex: Female

DRUGS (1)
  1. EVISTA [Suspect]

REACTIONS (1)
  - BREAST CANCER [None]
